FAERS Safety Report 8334161-9 (Version None)
Quarter: 2012Q2

REPORT INFORMATION
  Report Type: 
  Country: None (occurrence: None)
  Receive Date: 20120503
  Receipt Date: 20120424
  Transmission Date: 20120825
  Serious: Yes (Death)
  Sender: FDA-Public Use
  Company Number: PHHY2012IN037154

PATIENT
  Sex: Male

DRUGS (3)
  1. TACROLIMUS [Concomitant]
     Dosage: 0.10 MG/KG, UNK
  2. MYCOPHENOLIC ACID [Suspect]
     Indication: IMMUNOSUPPRESSION
     Dosage: 1 G, QD
     Route: 048
     Dates: start: 20110913
  3. PREDNISOLONE [Concomitant]
     Dosage: 10 MG, UNK

REACTIONS (1)
  - ACUTE HEPATIC FAILURE [None]
